FAERS Safety Report 13636147 (Version 2)
Quarter: 2017Q3

REPORT INFORMATION
  Report Type: Report from Study
  Country: US (occurrence: US)
  Receive Date: 20170609
  Receipt Date: 20170725
  Transmission Date: 20171127
  Serious: Yes (Life-Threatening, Other)
  Sender: FDA-Public Use
  Company Number: PHEH2017US017401

PATIENT
  Sex: Male

DRUGS (1)
  1. ENTRESTO [Suspect]
     Active Substance: SACUBITRIL\VALSARTAN
     Indication: PRODUCT USED FOR UNKNOWN INDICATION
     Dosage: 50 MG (24 MG SACUBITRIL AND 26 MG VALSARTAN), UNK
     Route: 065

REACTIONS (3)
  - Renal injury [Unknown]
  - Renal impairment [Unknown]
  - Apparent death [Unknown]
